FAERS Safety Report 7583097-X (Version None)
Quarter: 2011Q2

REPORT INFORMATION
  Report Type: 
  Country: None (occurrence: None)
  Receive Date: 20110527
  Receipt Date: 20101004
  Transmission Date: 20111010
  Serious: Yes (Other)
  Sender: FDA-Public Use
  Company Number: US201005000613

PATIENT
  Sex: Female
  Weight: 59.9 kg

DRUGS (5)
  1. BYETTA [Suspect]
     Dates: start: 20050901, end: 20100201
  2. TYLENOL /00020001/ (PARACETAMOL) [Concomitant]
  3. NOVOLOG [Concomitant]
  4. LIPITOR [Concomitant]
  5. EXENATIDE PEN (EXENATIDE PEN) [Concomitant]

REACTIONS (4)
  - PANCREATITIS [None]
  - OFF LABEL USE [None]
  - ANAEMIA [None]
  - RENAL FAILURE [None]
